FAERS Safety Report 5922319-5 (Version None)
Quarter: 2008Q4

REPORT INFORMATION
  Report Type: 
  Country: None (occurrence: None)
  Receive Date: 20081017
  Receipt Date: 20081013
  Transmission Date: 20090506
  Serious: Yes (Hospitalization)
  Sender: FDA-Public Use
  Company Number: US-ELI_LILLY_AND_COMPANY-US200807000250

PATIENT
  Sex: Female

DRUGS (7)
  1. HUMALOG [Suspect]
     Indication: GESTATIONAL DIABETES
     Dosage: 5 U, EACH MORNING
     Route: 058
     Dates: start: 20080606
  2. HUMALOG [Suspect]
     Dosage: 5 U, EACH EVENING
  3. HUMALOG [Suspect]
     Route: 058
  4. HUMULIN N [Suspect]
     Indication: GESTATIONAL DIABETES
     Dates: end: 20080620
  5. SYNTHROID [Concomitant]
     Indication: THYROID DISORDER
     Dosage: 1.175 MG, UNK
     Dates: start: 19891001
  6. PRENATAL VITAMINS /01549301/ [Concomitant]
     Dates: start: 20060101
  7. CALTRATE [Concomitant]
     Dates: start: 20080801

REACTIONS (11)
  - BED REST [None]
  - BLOOD GLUCOSE INCREASED [None]
  - DRUG EXPOSURE DURING PREGNANCY [None]
  - FEELING COLD [None]
  - HYPOGLYCAEMIA [None]
  - INFUSION SITE ERYTHEMA [None]
  - INFUSION SITE INFECTION [None]
  - NIGHT SWEATS [None]
  - PREMATURE LABOUR [None]
  - PROTEIN URINE PRESENT [None]
  - SHORTENED CERVIX [None]
